FAERS Safety Report 13059345 (Version 1)
Quarter: 2016Q4

REPORT INFORMATION
  Report Type: Spontaneous
  Country: US (occurrence: US)
  Receive Date: 20161223
  Receipt Date: 20161223
  Transmission Date: 20170207
  Serious: Yes (Other)
  Sender: FDA-Public Use
  Company Number: US-MYLANLABS-2016M1055873

PATIENT

DRUGS (5)
  1. PAROXETINE EXTENDED-RELEASE TABLETS USP [Suspect]
     Active Substance: PAROXETINE
     Indication: PANIC ATTACK
     Dosage: 12.5 MG, QD
     Dates: start: 2016
  2. PAROXETINE EXTENDED-RELEASE TABLETS USP [Suspect]
     Active Substance: PAROXETINE
     Indication: PANIC ATTACK
     Dosage: 25 MG, QD
     Route: 048
  3. KLONOPIN [Concomitant]
     Active Substance: CLONAZEPAM
     Indication: INSOMNIA
     Dosage: UNK
  4. PAROXETINE EXTENDED-RELEASE TABLETS USP [Suspect]
     Active Substance: PAROXETINE
     Dosage: 12.5 MG, QD
     Route: 048
  5. PAROXETINE EXTENDED-RELEASE TABLETS USP [Suspect]
     Active Substance: PAROXETINE
     Dosage: 6.25 MG, QD
     Route: 048
     Dates: end: 2016

REACTIONS (10)
  - Chest pain [Recovered/Resolved]
  - Drug effect decreased [Recovered/Resolved]
  - Emotional disorder [Recovered/Resolved]
  - Intentional product use issue [None]
  - Gastrooesophageal reflux disease [Recovered/Resolved]
  - Wrong technique in product usage process [Recovered/Resolved]
  - Depression [Recovered/Resolved]
  - Insomnia [Recovered/Resolved]
  - Feeling abnormal [Recovered/Resolved]
  - Product substitution issue [None]

NARRATIVE: CASE EVENT DATE: 2016
